FAERS Safety Report 9893763 (Version 3)
Quarter: 2017Q1

REPORT INFORMATION
  Report Type: Spontaneous
  Country: DK (occurrence: CA)
  Receive Date: 20140213
  Receipt Date: 20170110
  Transmission Date: 20170429
  Serious: Yes (Other)
  Sender: FDA-Public Use
  Company Number: CA-FRI-1000054196

PATIENT
  Age: 48 Year
  Sex: Male
  Weight: 104 kg

DRUGS (10)
  1. ATENOLOL. [Concomitant]
     Active Substance: ATENOLOL
     Dosage: 25 MG, QD
  2. DRONEDARONE [Concomitant]
     Active Substance: DRONEDARONE
     Dosage: 400 MG, QD
  3. PERCOCET [Concomitant]
     Active Substance: ACETAMINOPHEN\OXYCODONE HYDROCHLORIDE
     Dosage: UNK UNK, TID
     Dates: start: 20120917
  4. CYMBALTA [Suspect]
     Active Substance: DULOXETINE HYDROCHLORIDE
     Indication: DEPRESSION
  5. ZOPICLONE [Concomitant]
     Active Substance: ZOPICLONE
     Dosage: 7.5 MG, QD
  6. CYMBALTA [Suspect]
     Active Substance: DULOXETINE HYDROCHLORIDE
     Indication: ANXIETY
     Dosage: 60 MG, QD
     Route: 048
     Dates: start: 20121002, end: 20121004
  7. ESCITALOPRAM OXALATE UNK [Suspect]
     Active Substance: ESCITALOPRAM OXALATE
     Indication: ANXIETY
     Dosage: 10 MG, QD
     Route: 048
     Dates: start: 20121009, end: 20121020
  8. ESCITALOPRAM OXALATE UNK [Suspect]
     Active Substance: ESCITALOPRAM OXALATE
     Indication: DEPRESSION
  9. ASA [Concomitant]
     Active Substance: ASPIRIN
     Dosage: 325 MG, QD
  10. SYNTHROID [Concomitant]
     Active Substance: LEVOTHYROXINE SODIUM
     Dosage: .1 MG, QD

REACTIONS (12)
  - Tremor [Recovered/Resolved]
  - Anxiety [Recovered/Resolved]
  - Mood altered [Recovered/Resolved]
  - Middle insomnia [Recovered/Resolved]
  - Restlessness [Recovered/Resolved]
  - Hallucination [Recovered/Resolved]
  - Vomiting [Recovered/Resolved]
  - Injury [Recovered/Resolved]
  - Hyperhidrosis [Recovered/Resolved]
  - Hypervigilance [Recovered/Resolved]
  - Feeling jittery [Recovered/Resolved]
  - Abnormal dreams [Recovered/Resolved]

NARRATIVE: CASE EVENT DATE: 201210
